FAERS Safety Report 8139800-3 (Version None)
Quarter: 2012Q1

REPORT INFORMATION
  Report Type: 
  Country: None (occurrence: None)
  Receive Date: 20120215
  Receipt Date: 20120203
  Transmission Date: 20120608
  Serious: Yes (Hospitalization, Other)
  Sender: FDA-Public Use
  Company Number: US-UCBSA-051074

PATIENT
  Age: 30 Year
  Sex: Female
  Weight: 68.03 kg

DRUGS (1)
  1. VIMPAT [Suspect]
     Indication: CONVERSION DISORDER
     Dosage: FREQUENCY: BID
     Route: 048
     Dates: start: 20100101

REACTIONS (8)
  - BACK INJURY [None]
  - INTENTIONAL DRUG MISUSE [None]
  - DISORIENTATION [None]
  - DISSOCIATIVE IDENTITY DISORDER [None]
  - ABNORMAL BEHAVIOUR [None]
  - SUICIDAL IDEATION [None]
  - PARANOIA [None]
  - SUICIDE ATTEMPT [None]
